FAERS Safety Report 4699869-5 (Version None)
Quarter: 2005Q2

REPORT INFORMATION
  Report Type: 
  Country: None (occurrence: None)
  Receive Date: 20050623
  Receipt Date: 20050621
  Transmission Date: 20051028
  Serious: Yes (Other)
  Sender: FDA-Public Use
  Company Number: 805#1#2005-00049

PATIENT
  Age: 91 Year
  Sex: Male

DRUGS (2)
  1. PROSTANDIN           . (ALPROSTADIL (PAOD)) [Suspect]
     Indication: ATHEROSCLEROSIS OBLITERANS
     Dosage: INTRAVENOUS DRIP
     Route: 041
  2. PROSTANDIN           . (ALPROSTADIL (PAOD)) [Suspect]
     Indication: PULMONARY OEDEMA
     Dosage: INTRAVENOUS DRIP
     Route: 041

REACTIONS (1)
  - PULMONARY OEDEMA [None]
